FAERS Safety Report 25664435 (Version 1)
Quarter: 2025Q3

REPORT INFORMATION
  Report Type: Spontaneous
  Country: CN (occurrence: CN)
  Receive Date: 20250811
  Receipt Date: 20250811
  Transmission Date: 20251021
  Serious: Yes (Hospitalization, Other)
  Sender: PHARMOBEDIENT CONSULTING, LLC
  Company Number: CN-Pharmobedient-000061

PATIENT
  Age: 32 Year
  Sex: Male

DRUGS (2)
  1. LINEZOLID [Interacting]
     Active Substance: LINEZOLID
     Indication: Infection
     Route: 042
     Dates: start: 20241219
  2. PENTAZOCINE [Interacting]
     Active Substance: PENTAZOCINE
     Indication: Pain
     Route: 030
     Dates: start: 202412

REACTIONS (2)
  - Serotonin syndrome [Recovered/Resolved]
  - Drug interaction [Unknown]

NARRATIVE: CASE EVENT DATE: 20241220
